FAERS Safety Report 10220638 (Version 5)
Quarter: 2015Q2

REPORT INFORMATION
  Report Type: Report from Study
  Country: CA (occurrence: CA)
  Receive Date: 20140606
  Receipt Date: 20150525
  Transmission Date: 20150821
  Serious: Yes (Other)
  Sender: FDA-Public Use
  Company Number: CA-ROCHE-1285312

PATIENT
  Age: 61 Year
  Sex: Male
  Weight: 77.1 kg

DRUGS (16)
  1. RITUXAN [Suspect]
     Active Substance: RITUXIMAB
     Indication: RHEUMATOID ARTHRITIS
     Dosage: LAST DOSE  : 08/OCT/2013
     Route: 042
     Dates: start: 20101202
  2. EZETROL [Concomitant]
     Active Substance: EZETIMIBE
  3. NORVASC [Concomitant]
     Active Substance: AMLODIPINE BESYLATE
  4. FLAX OIL [Concomitant]
  5. TYLENOL WITH CODEINE [Concomitant]
     Active Substance: ACETAMINOPHEN\CODEINE PHOSPHATE
  6. MOTRIN [Concomitant]
     Active Substance: IBUPROFEN
  7. ASPIRIN. [Concomitant]
     Active Substance: ASPIRIN
  8. METHOTREXATE [Suspect]
     Active Substance: METHOTREXATE
     Indication: PRODUCT USED FOR UNKNOWN INDICATION
     Route: 065
  9. RITUXAN [Suspect]
     Active Substance: RITUXIMAB
     Indication: CHRONIC LYMPHOCYTIC LEUKAEMIA
     Dosage: LAST DOSE
     Route: 042
     Dates: start: 20131128
  10. RAMIPRIL. [Concomitant]
     Active Substance: RAMIPRIL
  11. LIPITOR [Concomitant]
     Active Substance: ATORVASTATIN CALCIUM
  12. METHYLPREDNISOLONE. [Concomitant]
     Active Substance: METHYLPREDNISOLONE
     Indication: PREMEDICATION
     Route: 042
     Dates: start: 20101202
  13. CALCIUM [Concomitant]
     Active Substance: CALCIUM
  14. FISH OIL [Concomitant]
     Active Substance: FISH OIL
  15. DIPHENHYDRAMINE HCL [Concomitant]
     Active Substance: DIPHENHYDRAMINE HYDROCHLORIDE
     Indication: PREMEDICATION
     Route: 048
     Dates: start: 20101202
  16. ACETAMINOPHEN. [Concomitant]
     Active Substance: ACETAMINOPHEN
     Indication: PREMEDICATION
     Route: 048
     Dates: start: 20101202

REACTIONS (9)
  - Pneumonia [Not Recovered/Not Resolved]
  - Upper respiratory tract infection [Unknown]
  - Infusion related reaction [Recovered/Resolved]
  - Leukaemia [Not Recovered/Not Resolved]
  - Nasopharyngitis [Unknown]
  - Diabetes mellitus inadequate control [Not Recovered/Not Resolved]
  - Head discomfort [Unknown]
  - Fatigue [Unknown]
  - Malignant neoplasm progression [Unknown]

NARRATIVE: CASE EVENT DATE: 2013
